FAERS Safety Report 17574227 (Version 4)
Quarter: 2021Q1

REPORT INFORMATION
  Report Type: Spontaneous
  Country: JP (occurrence: JP)
  Receive Date: 20200323
  Receipt Date: 20210107
  Transmission Date: 20210419
  Serious: Yes (Life-Threatening, Hospitalization, Other)
  Sender: FDA-Public Use
  Company Number: JP-TAKEDA-2020TJP005201

PATIENT
  Age: 75 Year
  Sex: Male
  Weight: 45.5 kg

DRUGS (6)
  1. HARNAL [Concomitant]
     Active Substance: TAMSULOSIN HYDROCHLORIDE
     Dosage: 0.2 MILLIGRAM, QD
     Route: 048
     Dates: start: 20190125
  2. INISYNC COMBINATION TABLETS [Suspect]
     Active Substance: ALOGLIPTIN BENZOATE\METFORMIN HYDROCHLORIDE
     Indication: DIABETES MELLITUS
     Dosage: 1 DOSAGE FORM, QD
     Route: 048
     Dates: start: 20190125, end: 20200204
  3. BAYASPIRIN [Concomitant]
     Active Substance: ASPIRIN
     Dosage: 100 MILLIGRAM, QD
     Route: 048
     Dates: start: 20190125
  4. GLIMICRON [Concomitant]
     Active Substance: GLICLAZIDE
     Dosage: 40 MILLIGRAM, QD
     Route: 048
     Dates: start: 20190125
  5. LOSARTAN POTASSIUM. [Concomitant]
     Active Substance: LOSARTAN POTASSIUM
     Dosage: 50 MILLIGRAM, QD
     Route: 048
     Dates: start: 20190125
  6. JARDIANCE [Concomitant]
     Active Substance: EMPAGLIFLOZIN
     Dosage: 10 MILLIGRAM, QD
     Route: 048
     Dates: start: 20190125

REACTIONS (3)
  - Autoimmune pancreatitis [Recovered/Resolved]
  - Diabetes mellitus [Unknown]
  - Jaundice cholestatic [Recovered/Resolved with Sequelae]

NARRATIVE: CASE EVENT DATE: 20200203
